FAERS Safety Report 5591911-2 (Version None)
Quarter: 2008Q1

REPORT INFORMATION
  Report Type: 
  Country: None (occurrence: None)
  Receive Date: 20080115
  Receipt Date: 20080107
  Transmission Date: 20080703
  Serious: Yes (Hospitalization)
  Sender: FDA-Public Use
  Company Number: BR-AVENTIS-200718272GDDC

PATIENT
  Sex: Female
  Weight: 46 kg

DRUGS (4)
  1. LANTUS [Suspect]
     Route: 058
     Dates: start: 20060101, end: 20070801
  2. LANTUS [Suspect]
     Route: 058
     Dates: start: 20070801, end: 20070901
  3. LANTUS [Suspect]
     Route: 058
     Dates: start: 20070901
  4. NOVORAPID [Concomitant]
     Dosage: DOSE: 4 TO 5
     Route: 058
     Dates: start: 20060101

REACTIONS (7)
  - ABDOMINAL PAIN [None]
  - BACK PAIN [None]
  - BURNING SENSATION [None]
  - COLD SWEAT [None]
  - HYPOGLYCAEMIA [None]
  - PHARMACEUTICAL PRODUCT COMPLAINT [None]
  - TREMOR [None]
